FAERS Safety Report 21448175 (Version 1)
Quarter: 2022Q4

REPORT INFORMATION
  Report Type: Spontaneous
  Country: US (occurrence: None)
  Receive Date: 20221011
  Receipt Date: 20221011
  Transmission Date: 20230113
  Serious: Yes (Hospitalization)
  Sender: FDA-Public Use
  Company Number: None

PATIENT
  Age: 82 Year
  Sex: Male
  Weight: 83.01 kg

DRUGS (4)
  1. GRANIX [Suspect]
     Active Substance: TBO-FILGRASTIM
     Indication: Myelodysplastic syndrome
     Dosage: OTHER STRENGTH : 480/0.8 UG/ML;?FREQUENCY : DAILY;?
     Route: 058
  2. CARBIDOPA\LEVODOPA [Concomitant]
     Active Substance: CARBIDOPA\LEVODOPA
  3. SINEMET [Concomitant]
     Active Substance: CARBIDOPA\LEVODOPA
  4. TRAMADOL [Concomitant]
     Active Substance: TRAMADOL

REACTIONS (3)
  - Pyrexia [None]
  - Confusional state [None]
  - Full blood count decreased [None]
